FAERS Safety Report 4698278-2 (Version None)
Quarter: 2005Q2

REPORT INFORMATION
  Report Type: 
  Country: None (occurrence: None)
  Receive Date: 20050621
  Receipt Date: 20050617
  Transmission Date: 20051028
  Serious: Yes (Hospitalization)
  Sender: FDA-Public Use
  Company Number: 214438

PATIENT
  Sex: Female

DRUGS (4)
  1. RITUXAN [Suspect]
     Indication: NON-HODGKIN'S LYMPHOMA
     Dosage: INTRAVENOUS
     Route: 042
     Dates: start: 20040101
  2. FLUDARABINE PHOSPHATE [Concomitant]
  3. NOVANTRONE [Concomitant]
  4. COUMADIN [Concomitant]

REACTIONS (7)
  - CEREBROVASCULAR ACCIDENT [None]
  - DEPRESSION [None]
  - GRAND MAL CONVULSION [None]
  - HYPOTENSION [None]
  - MENTAL IMPAIRMENT [None]
  - SPEECH DISORDER [None]
  - SYNCOPE [None]
